FAERS Safety Report 19412108 (Version 3)
Quarter: 2021Q3

REPORT INFORMATION
  Report Type: Spontaneous
  Country: US (occurrence: US)
  Receive Date: 20210614
  Receipt Date: 20210912
  Transmission Date: 20211014
  Serious: No
  Sender: FDA-Public Use
  Company Number: US-SA-2021SA184437

PATIENT
  Age: 62 Year
  Sex: Female

DRUGS (1)
  1. LANTUS SOLOSTAR [Suspect]
     Active Substance: INSULIN GLARGINE
     Indication: TYPE 1 DIABETES MELLITUS
     Dosage: 5 IU, QD
     Route: 065
     Dates: start: 20210510

REACTIONS (4)
  - Blister [Recovered/Resolved]
  - Depression [Unknown]
  - Feeling abnormal [Unknown]
  - Contusion [Unknown]

NARRATIVE: CASE EVENT DATE: 2021
